FAERS Safety Report 8816335 (Version 1)
Quarter: 2012Q4

REPORT INFORMATION
  Report Type: Spontaneous
  Country: US (occurrence: None)
  Receive Date: 20120927
  Receipt Date: 20120927
  Transmission Date: 20130627
  Serious: Yes (Disabling)
  Sender: FDA-Public Use
  Company Number: None

PATIENT
  Age: 74 Year
  Sex: Male
  Weight: 65.77 kg

DRUGS (1)
  1. TRIAMTERENE AND HYDROCHLOROTHIAZIDE [Suspect]
     Indication: BLOOD PRESSURE HIGH
     Dosage: 1 tablet per day, po
     Route: 048
     Dates: start: 20080301, end: 20120907

REACTIONS (8)
  - Cough [None]
  - Pulmonary mass [None]
  - Speech disorder [None]
  - Gait disturbance [None]
  - Head titubation [None]
  - Tremor [None]
  - Poisoning [None]
  - Renal function test abnormal [None]
